FAERS Safety Report 23501611 (Version 2)
Quarter: 2024Q1

REPORT INFORMATION
  Report Type: Report from Study
  Country: US (occurrence: US)
  Receive Date: 20240208
  Receipt Date: 20240222
  Transmission Date: 20240410
  Serious: Yes (Death)
  Sender: FDA-Public Use
  Company Number: US-JNJFOC-20240211162

PATIENT
  Age: 62 Year
  Sex: Female

DRUGS (4)
  1. SPRAVATO [Suspect]
     Active Substance: ESKETAMINE
     Indication: Depression
     Dosage: 56 MG, 8 DOSES
     Dates: start: 20231205, end: 20240102
  2. CLONAZEPAM [Concomitant]
     Active Substance: CLONAZEPAM
  3. MIRTAZAPINE [Concomitant]
     Active Substance: MIRTAZAPINE
  4. AMITRIPTYLINE [Concomitant]
     Active Substance: AMITRIPTYLINE

REACTIONS (1)
  - Death [Fatal]
